FAERS Safety Report 21565943 (Version 4)
Quarter: 2023Q4

REPORT INFORMATION
  Report Type: Spontaneous
  Country: JP (occurrence: JP)
  Receive Date: 20221108
  Receipt Date: 20231128
  Transmission Date: 20240109
  Serious: No
  Sender: FDA-Public Use
  Company Number: JP-PFIZER INC-PV202200088414

PATIENT
  Age: 57 Year
  Sex: Female

DRUGS (1)
  1. ENBREL [Suspect]
     Active Substance: ETANERCEPT
     Dosage: UNK

REACTIONS (1)
  - Device failure [Unknown]

NARRATIVE: CASE EVENT DATE: 20221021
